FAERS Safety Report 23438826 (Version 3)
Quarter: 2025Q1

REPORT INFORMATION
  Report Type: Report from Study
  Country: US (occurrence: US)
  Receive Date: 20240124
  Receipt Date: 20250108
  Transmission Date: 20250409
  Serious: No
  Sender: SANOFI AVENTIS
  Company Number: US-SA-SAC20240122000346

PATIENT
  Age: 43 Year
  Sex: Female

DRUGS (18)
  1. DUPIXENT [Suspect]
     Active Substance: DUPILUMAB
     Indication: Asthma
     Dosage: 300 MG, QOW
     Route: 058
     Dates: start: 202202
  2. DUPIXENT [Suspect]
     Active Substance: DUPILUMAB
     Indication: Rhinitis allergic
  3. DELTASONE [Concomitant]
     Active Substance: PREDNISONE
     Dates: start: 20240308, end: 20240313
  4. PROVENTIL [Concomitant]
     Active Substance: ALBUTEROL
     Dosage: 3.000ML Q4H
  5. ZITHROMAX [Concomitant]
     Active Substance: AZITHROMYCIN DIHYDRATE
     Dates: start: 20240308, end: 20240426
  6. TORADOL [Concomitant]
     Active Substance: KETOROLAC TROMETHAMINE
  7. ASPIRIN [Concomitant]
     Active Substance: ASPIRIN
     Dosage: 1.000DF QD
     Route: 048
  8. SYMBICORT [Concomitant]
     Active Substance: BUDESONIDE\FORMOTEROL FUMARATE DIHYDRATE
     Indication: Asthma
     Dosage: 2.000DF BID
  9. LIDOCAINE [Concomitant]
     Active Substance: LIDOCAINE
     Dosage: 1.000DF QD
  10. ZANAFLEX [Concomitant]
     Active Substance: TIZANIDINE HYDROCHLORIDE
  11. ZYRTEC [Concomitant]
     Active Substance: CETIRIZINE HYDROCHLORIDE
     Dosage: QD
  12. ALBUTEROL [Concomitant]
     Active Substance: ALBUTEROL
     Dosage: 2 DF, Q6H
     Route: 048
  13. SINGULAIR [Concomitant]
     Active Substance: MONTELUKAST SODIUM
     Indication: Seasonal allergy
     Dosage: 1 DF, HS
     Route: 048
  14. TENORMIN [Concomitant]
     Active Substance: ATENOLOL
  15. MOUNJARO [Concomitant]
     Active Substance: TIRZEPATIDE
     Dosage: 5 MG, QW
     Route: 058
  16. ULTRAM [Concomitant]
     Active Substance: TRAMADOL HYDROCHLORIDE
  17. SPIRIVA [Concomitant]
     Active Substance: TIOTROPIUM BROMIDE MONOHYDRATE
  18. DUONEB [Concomitant]
     Active Substance: ALBUTEROL SULFATE\IPRATROPIUM BROMIDE

REACTIONS (9)
  - Dyspnoea [Not Recovered/Not Resolved]
  - Chest discomfort [Unknown]
  - Sputum discoloured [Unknown]
  - Cough [Unknown]
  - Wheezing [Unknown]
  - Sinus disorder [Unknown]
  - Back pain [Unknown]
  - Arthralgia [Unknown]
  - Product use in unapproved indication [Unknown]

NARRATIVE: CASE EVENT DATE: 20240101
